FAERS Safety Report 18149933 (Version 1)
Quarter: 2020Q3

REPORT INFORMATION
  Report Type: Spontaneous
  Country: NL (occurrence: NL)
  Receive Date: 20200814
  Receipt Date: 20200814
  Transmission Date: 20201103
  Serious: Yes (Other)
  Sender: FDA-Public Use
  Company Number: NL-TEVA-2020-NL-1813794

PATIENT
  Age: 84 Year
  Sex: Female
  Weight: 80 kg

DRUGS (7)
  1. CALCIUMCARBONAAT KAUWTABLET 1,25G (500MG CA) / CALCI CHEW KAUWTABLET [Concomitant]
     Dosage: 1,25 G (GRAM),THERAPY START DATE :ASKU,THERAPY END DATE :ASKU
  2. MACROGOL/ZOUTEN PDR V DRANK (MOVIC/MOLAX/LAXT/GEN) / BRAND NAME NOT SP [Concomitant]
     Dosage: POWDER FOR DRINK,THERAPY START DATE :ASKU,THERAPY END DATE :ASKU
  3. PARACETAMOL TABLET  500MG / BRAND NAME NOT SPECIFIED [Concomitant]
     Dosage: 500 MG (MILLIGRAM),THERAPY START DATE :ASKU,THERAPY END DATE :ASKU
  4. CITALOPRAM TABLET OMHULD 10MG / BRAND NAME NOT SPECIFIED [Concomitant]
     Dosage: 10 MG (MILLIGRAM),THERAPY START DATE :ASKU,THERAPY END DATE :ASKU
  5. TEMAZEPAM TABLET 10MG / BRAND NAME NOT SPECIFIED [Concomitant]
     Dosage: 10 MG (MILLIGRAM),THERAPY START DATE :ASKU,THERAPY END DATE :ASKU
  6. BUPRENORFINE PLEISTER 10UG/UUR / BRAND NAME NOT SPECIFIED [Suspect]
     Active Substance: BUPRENORPHINE
     Indication: PAIN
     Dosage: 1 DOSAGE FORMS
     Dates: start: 20200609, end: 20200624
  7. CLOPIDOGREL TABLET   75MG / BRAND NAME NOT SPECIFIED [Concomitant]
     Dosage: 75 MG (MILLIGRAM),THERAPY START DATE :ASKU,THERAPY END DATE :ASKU

REACTIONS (2)
  - Oedema [Recovered/Resolved]
  - Confusional state [Recovered/Resolved]

NARRATIVE: CASE EVENT DATE: 20200622
